FAERS Safety Report 11621493 (Version 1)
Quarter: 2015Q4

REPORT INFORMATION
  Report Type: Spontaneous
  Country: US (occurrence: US)
  Receive Date: 20151012
  Receipt Date: 20151012
  Transmission Date: 20160304
  Serious: Yes (Other)
  Sender: FDA-Public Use
  Company Number: US-GLENMARK PHARMACEUTICALS INC, USA.-2015GMK019904

PATIENT
  Age: 46 Year
  Sex: Female

DRUGS (3)
  1. IMIQUIMOD CREAM [Suspect]
     Active Substance: IMIQUIMOD
     Indication: METASTATIC MALIGNANT MELANOMA
     Dosage: UNK, QD
     Route: 061
     Dates: start: 201103
  2. INTERLEUKIN-2 [Suspect]
     Active Substance: ALDESLEUKIN
     Indication: METASTATIC MALIGNANT MELANOMA
     Dosage: 7-22 MILLION IU, UNK
     Route: 026
     Dates: start: 201103
  3. RETINOIDS [Suspect]
     Active Substance: UNSPECIFIED INGREDIENT
     Indication: METASTATIC MALIGNANT MELANOMA
     Dosage: UNK
     Route: 061

REACTIONS (7)
  - Off label use [Unknown]
  - Skin ulcer [Unknown]
  - Panniculitis [Recovered/Resolved]
  - Granulomatous dermatitis [Unknown]
  - Therapeutic response unexpected [Unknown]
  - Dyspnoea [Unknown]
  - Chills [Unknown]
